FAERS Safety Report 7105671-7 (Version None)
Quarter: 2010Q4

REPORT INFORMATION
  Report Type: 
  Country: None (occurrence: None)
  Receive Date: 20101110
  Receipt Date: 20101025
  Transmission Date: 20110411
  Serious: Yes (Other)
  Sender: FDA-Public Use
  Company Number: IN-ACCORD-006561

PATIENT
  Age: 49 Year
  Sex: Male

DRUGS (1)
  1. TOPIRAMATE [Suspect]
     Indication: ALCOHOLISM

REACTIONS (7)
  - ANGLE CLOSURE GLAUCOMA [None]
  - CHOROIDAL DETACHMENT [None]
  - CHOROIDAL EFFUSION [None]
  - CORNEAL OEDEMA [None]
  - FLAT ANTERIOR CHAMBER OF EYE [None]
  - IRIDOCYCLITIS [None]
  - IRIS ADHESIONS [None]
